FAERS Safety Report 11487747 (Version 1)
Quarter: 2015Q3

REPORT INFORMATION
  Report Type: Spontaneous
  Country: US (occurrence: US)
  Receive Date: 20150909
  Receipt Date: 20150909
  Transmission Date: 20151125
  Serious: No
  Sender: FDA-Public Use
  Company Number: US-JAZZ-2015-US-002979

PATIENT
  Age: 70 Year
  Sex: Male

DRUGS (4)
  1. MELATONIN [Concomitant]
     Active Substance: MELATONIN
     Indication: PRODUCT USED FOR UNKNOWN INDICATION
     Dosage: 5 MG, UNK
     Dates: start: 20150205
  2. KLONOPIN [Concomitant]
     Active Substance: CLONAZEPAM
     Indication: PRODUCT USED FOR UNKNOWN INDICATION
     Dosage: 0.5 MG, UNK
     Dates: start: 20150205
  3. XYREM [Suspect]
     Active Substance: SODIUM OXYBATE
     Indication: HYPERSOMNIA
     Dosage: 2.25 G, BID
     Route: 048
     Dates: start: 20150221, end: 20150312
  4. WELLBUTRIN XL [Concomitant]
     Active Substance: BUPROPION HYDROCHLORIDE
     Indication: SOMNOLENCE
     Dosage: 500 MG, UNK
     Dates: start: 20150205

REACTIONS (19)
  - Asthenia [Unknown]
  - Disturbance in attention [Unknown]
  - Feeling drunk [Unknown]
  - Asthenopia [Unknown]
  - Hallucination, auditory [Unknown]
  - Abnormal dreams [Unknown]
  - Dry eye [Unknown]
  - Fatigue [Unknown]
  - Product use issue [Not Recovered/Not Resolved]
  - Feeling abnormal [Unknown]
  - Cognitive disorder [Unknown]
  - Mental impairment [Unknown]
  - Somnolence [Unknown]
  - Tinnitus [Unknown]
  - Dizziness [Unknown]
  - Balance disorder [Unknown]
  - Unevaluable event [Unknown]
  - Pulse pressure increased [Recovered/Resolved]
  - Eye irritation [Unknown]

NARRATIVE: CASE EVENT DATE: 201502
